FAERS Safety Report 4304143-2 (Version None)
Quarter: 2004Q1

REPORT INFORMATION
  Report Type: 
  Country: None (occurrence: None)
  Receive Date: 20040225
  Receipt Date: 20040216
  Transmission Date: 20041129
  Serious: Yes (Other)
  Sender: FDA-Public Use
  Company Number: PHBS2004BR02238

PATIENT
  Sex: Male

DRUGS (1)
  1. CATAFLAM [Suspect]
     Indication: TOOTH EXTRACTION
     Dosage: 50 MG, Q8H
     Route: 048
     Dates: start: 20030101, end: 20030101

REACTIONS (1)
  - CROHN'S DISEASE [None]
